FAERS Safety Report 9990811 (Version 1)
Quarter: 2014Q1

REPORT INFORMATION
  Report Type: Report from Study
  Country: US (occurrence: US)
  Receive Date: 20140310
  Receipt Date: 20140310
  Transmission Date: 20141002
  Serious: No
  Sender: FDA-Public Use
  Company Number: US-ABBVIE-13P-163-1135584-00

PATIENT
  Age: 39 Year
  Sex: Female

DRUGS (3)
  1. HUMIRA [Suspect]
     Indication: COLITIS ULCERATIVE
     Dosage: LOADING DOSE
     Dates: start: 201307, end: 201307
  2. HUMIRA [Suspect]
     Dosage: LOADING DOSE
     Dates: start: 20130805, end: 20130805
  3. HUMIRA [Suspect]

REACTIONS (1)
  - Injection site pain [Recovered/Resolved]
